FAERS Safety Report 10469613 (Version 1)
Quarter: 2014Q3

REPORT INFORMATION
  Report Type: Spontaneous
  Country: US (occurrence: None)
  Receive Date: 20140919
  Receipt Date: 20140919
  Transmission Date: 20150326
  Serious: Yes (Other)
  Sender: FDA-Public Use
  Company Number: 2014COV00114

PATIENT
  Age: 85 Year
  Sex: Female
  Weight: 69.8 kg

DRUGS (3)
  1. PLAQUENIL [Suspect]
     Active Substance: HYDROXYCHLOROQUINE SULFATE
     Indication: INFLAMMATION
     Route: 048
     Dates: start: 20140505, end: 20140904
  2. PREDNISONE. [Concomitant]
     Active Substance: PREDNISONE
  3. SYNTHROID [Concomitant]
     Active Substance: LEVOTHYROXINE SODIUM

REACTIONS (10)
  - Fatigue [None]
  - Vertigo [None]
  - Fall [None]
  - Depression [None]
  - Walking aid user [None]
  - Decreased appetite [None]
  - Asthenia [None]
  - Weight decreased [None]
  - Dry skin [None]
  - Nervousness [None]

NARRATIVE: CASE EVENT DATE: 2014
